FAERS Safety Report 10384088 (Version 1)
Quarter: 2014Q1

REPORT INFORMATION
  Report Type: Spontaneous
  Country: US (occurrence: None)
  Receive Date: 20140306
  Receipt Date: 20140306
  Transmission Date: 20141002
  Serious: Yes (Other)
  Sender: FDA-Public Use
  Company Number: 163-21880-13051191

PATIENT
  Age: 57 Year
  Sex: Male
  Weight: 64.7 kg

DRUGS (4)
  1. REVLIMID (LENALIDOMIDE) (10 MILLIGRAM CAPSULES0 [Suspect]
     Route: 048
     Dates: start: 201301
  2. ASPIRIN (ACETYLSALICYLIC ACID)(TABLETS) [Concomitant]
  3. HYDROCODONE-ACETAMINOPHEN (VICODIN) [Concomitant]
  4. TEMAZEPAM (TEMAZEPAM) ( 15 MILLIGRAM, CAPSULES [Concomitant]

REACTIONS (1)
  - Plasma cell myeloma [None]
